FAERS Safety Report 7686446-7 (Version None)
Quarter: 2011Q3

REPORT INFORMATION
  Report Type: 
  Country: None (occurrence: None)
  Receive Date: 20110816
  Receipt Date: 20110722
  Transmission Date: 20111222
  Serious: No
  Sender: FDA-Public Use
  Company Number: US-ASTRAZENECA-2011SE41220

PATIENT
  Age: 69 Year
  Sex: Female

DRUGS (4)
  1. FLUTICASONE PROPIONATE [Concomitant]
     Route: 045
  2. PROAIR HFA [Concomitant]
  3. SYMBICORT [Suspect]
     Route: 055
  4. SPIRIVA [Concomitant]

REACTIONS (6)
  - SINUSITIS [None]
  - MULTIPLE ALLERGIES [None]
  - INCREASED UPPER AIRWAY SECRETION [None]
  - UPPER-AIRWAY COUGH SYNDROME [None]
  - DYSPHONIA [None]
  - PAIN [None]
